FAERS Safety Report 17153084 (Version 5)
Quarter: 2020Q1

REPORT INFORMATION
  Report Type: Spontaneous
  Country: US (occurrence: US)
  Receive Date: 20191213
  Receipt Date: 20200116
  Transmission Date: 20200409
  Serious: Yes (Life-Threatening, Hospitalization, Other)
  Sender: FDA-Public Use
  Company Number: US-UNITED THERAPEUTICS-UNT-2019-020584

PATIENT
  Age: 69 Year
  Sex: Female
  Weight: 65.76 kg

DRUGS (7)
  1. BOSENTAN. [Suspect]
     Active Substance: BOSENTAN
     Indication: PULMONARY ARTERIAL HYPERTENSION
     Dosage: 1 DF, BID
     Route: 048
     Dates: start: 20190730
  2. REMODULIN [Suspect]
     Active Substance: TREPROSTINIL
     Indication: PULMONARY ARTERIAL HYPERTENSION
     Dosage: 0.053 ?G/KG, CONTINUING
     Route: 058
     Dates: start: 20171221
  3. XARELTO [Concomitant]
     Active Substance: RIVAROXABAN
     Indication: PRODUCT USED FOR UNKNOWN INDICATION
     Dosage: UNK
     Route: 065
  4. DILTIAZEM. [Concomitant]
     Active Substance: DILTIAZEM
     Indication: PRODUCT USED FOR UNKNOWN INDICATION
     Dosage: UNK
     Route: 065
  5. ADEMPAS [Suspect]
     Active Substance: RIOCIGUAT
     Indication: PRODUCT USED FOR UNKNOWN INDICATION
     Dosage: UNK
     Route: 065
     Dates: end: 201911
  6. BOSENTAN. [Suspect]
     Active Substance: BOSENTAN
     Indication: PULMONARY ARTERIAL HYPERTENSION
     Dosage: UNK
     Route: 048
  7. SILDENAFIL. [Suspect]
     Active Substance: SILDENAFIL
     Indication: PRODUCT USED FOR UNKNOWN INDICATION
     Dosage: UNK
     Route: 065

REACTIONS (13)
  - Infusion site reaction [Recovering/Resolving]
  - Decreased appetite [Unknown]
  - Pruritus [Unknown]
  - Weight decreased [Unknown]
  - Diarrhoea [Unknown]
  - Infusion site rash [Recovering/Resolving]
  - Pulmonary hypertension [Unknown]
  - Oedema peripheral [Unknown]
  - Infusion site swelling [Recovering/Resolving]
  - Infusion site induration [Recovering/Resolving]
  - Mobility decreased [Unknown]
  - Nausea [Unknown]
  - Infusion site infection [Recovering/Resolving]

NARRATIVE: CASE EVENT DATE: 20191208
